FAERS Safety Report 19461263 (Version 2)
Quarter: 2023Q1

REPORT INFORMATION
  Report Type: Spontaneous
  Country: FR (occurrence: FR)
  Receive Date: 20210625
  Receipt Date: 20230107
  Transmission Date: 20230418
  Serious: Yes (Other)
  Sender: FDA-Public Use
  Company Number: None

PATIENT
  Age: 80 Year
  Sex: Female
  Weight: 65 kg

DRUGS (3)
  1. LANSOPRAZOLE [Suspect]
     Active Substance: LANSOPRAZOLE
     Indication: Gastrooesophageal reflux disease
     Dosage: 15 MG
     Route: 048
     Dates: start: 20210404, end: 20210414
  2. SKENAN [Suspect]
     Active Substance: MORPHINE SULFATE
     Indication: Pain
     Dosage: PROLONGED-RELEASE MICROGRANULES IN HARD CAPSULES, 20 MG?SKENAN L.P. 10 MG, MICROGRANULES A LIBERATIO
     Route: 048
     Dates: start: 20210412, end: 20210414
  3. MORPHINE SULFATE [Suspect]
     Active Substance: MORPHINE SULFATE
     Indication: Pain
     Dosage: 15 MG?ACTISKENAN 5 MG, GELULE
     Route: 048
     Dates: start: 20210408, end: 20210414

REACTIONS (2)
  - Sphincter of Oddi dysfunction [Recovering/Resolving]
  - Hepatitis cholestatic [Recovering/Resolving]

NARRATIVE: CASE EVENT DATE: 20210414
